FAERS Safety Report 9698125 (Version 2)
Quarter: 2013Q4

REPORT INFORMATION
  Report Type: Report from Study
  Country: JP (occurrence: JP)
  Receive Date: 20131120
  Receipt Date: 20131219
  Transmission Date: 20140711
  Serious: Yes (Death)
  Sender: FDA-Public Use
  Company Number: JP-SA-2013SA120236

PATIENT
  Sex: 0

DRUGS (3)
  1. OXALIPLATIN [Suspect]
     Indication: COLORECTAL CANCER METASTATIC
     Dosage: ON DAY 1 OF EACH 3-WEEK CYCLE (2 H)
     Route: 042
  2. BEVACIZUMAB [Suspect]
     Indication: COLORECTAL CANCER METASTATIC
     Dosage: ON DAY 1 OF EACH 3-WEEK CYCLE (30-90 MIN)
     Route: 042
  3. S-1 [Suspect]
     Indication: COLORECTAL CANCER METASTATIC
     Dosage: TWICE A DAY AFTER DINNER ON DAY 1 TO AFTER BREAKFAST ON DAY 15, FOLLOWED BY 7-DAY BREAK
     Route: 048

REACTIONS (1)
  - Death [Fatal]
